FAERS Safety Report 8158903-0 (Version None)
Quarter: 2012Q1

REPORT INFORMATION
  Report Type: 
  Country: None (occurrence: None)
  Receive Date: 20120223
  Receipt Date: 20120213
  Transmission Date: 20120608
  Serious: Yes (Other)
  Sender: FDA-Public Use
  Company Number: BR-BRISTOL-MYERS SQUIBB COMPANY-16400228

PATIENT
  Sex: Female

DRUGS (4)
  1. SOMALGIN [Concomitant]
     Indication: CARDIAC DISORDER
     Dosage: 1DF: 1 TAB
     Route: 048
     Dates: start: 20041201, end: 20120208
  2. CRESTOR [Concomitant]
     Indication: BLOOD CHOLESTEROL
     Route: 048
     Dates: start: 20040101, end: 20120208
  3. PLAVIX [Suspect]
  4. IRBESARTAN [Suspect]
     Route: 048

REACTIONS (1)
  - CORONARY ARTERY DISEASE [None]
